FAERS Safety Report 24676081 (Version 1)
Quarter: 2024Q4

REPORT INFORMATION
  Report Type: Spontaneous
  Country: US (occurrence: US)
  Receive Date: 20241128
  Receipt Date: 20241128
  Transmission Date: 20250114
  Serious: Yes (Other)
  Sender: ALEXION PHARMACEUTICALS
  Company Number: US-ASTRAZENECA-202411USA017416US

PATIENT

DRUGS (8)
  1. CRESTOR [Suspect]
     Active Substance: ROSUVASTATIN CALCIUM
     Route: 065
  2. CRESTOR [Suspect]
     Active Substance: ROSUVASTATIN CALCIUM
  3. CRESTOR [Suspect]
     Active Substance: ROSUVASTATIN CALCIUM
     Route: 065
  4. CRESTOR [Suspect]
     Active Substance: ROSUVASTATIN CALCIUM
  5. PALBOCICLIB [Suspect]
     Active Substance: PALBOCICLIB
     Route: 065
  6. PALBOCICLIB [Suspect]
     Active Substance: PALBOCICLIB
  7. PALBOCICLIB [Suspect]
     Active Substance: PALBOCICLIB
     Route: 065
  8. PALBOCICLIB [Suspect]
     Active Substance: PALBOCICLIB

REACTIONS (5)
  - Diabetes mellitus [Unknown]
  - Blood glucose increased [Unknown]
  - Low density lipoprotein increased [Unknown]
  - Abdominal discomfort [Unknown]
  - Blood triglycerides increased [Unknown]
